FAERS Safety Report 9544059 (Version 1)
Quarter: 2013Q3

REPORT INFORMATION
  Report Type: Spontaneous
  Country: JP (occurrence: JP)
  Receive Date: 20130923
  Receipt Date: 20130923
  Transmission Date: 20140515
  Serious: Yes (Other)
  Sender: FDA-Public Use
  Company Number: JP-ROXANE LABORATORIES, INC.-2013-RO-01545RO

PATIENT
  Age: 45 Year
  Sex: Female

DRUGS (10)
  1. CYCLOPHOSPHAMIDE TABLETS USP [Suspect]
     Indication: BREAST CANCER
     Route: 048
  2. CYCLOPHOSPHAMIDE TABLETS USP [Suspect]
     Indication: METASTASES TO LUNG
  3. METHOTREXATE [Suspect]
     Indication: BREAST CANCER
  4. ANASTROZOLE [Suspect]
     Indication: METASTASES TO LUNG
     Dosage: 1 MG
  5. DEXAMETHASONE [Suspect]
     Indication: PREMEDICATION
  6. NAB-PACLITAXEL [Suspect]
     Indication: BREAST CANCER
     Dates: start: 201201
  7. 5-FLUOROURACIL [Suspect]
     Indication: BREAST CANCER
  8. 5-FLUOROURACIL [Suspect]
     Indication: METASTASES TO LUNG
  9. EPIRUBICIN [Suspect]
     Indication: METASTASES TO LUNG
  10. METFORMIN HYDROCHLORIDE [Concomitant]
     Indication: DIABETES MELLITUS
     Dosage: 2250 MG

REACTIONS (5)
  - Metastases to lung [Unknown]
  - Blood glucose increased [Unknown]
  - Glycosylated haemoglobin increased [Unknown]
  - Disease progression [Unknown]
  - Peripheral sensory neuropathy [Unknown]
